FAERS Safety Report 9562106 (Version 3)
Quarter: 2014Q1

REPORT INFORMATION
  Report Type: Spontaneous
  Country: JP (occurrence: JP)
  Receive Date: 20130927
  Receipt Date: 20140310
  Transmission Date: 20141002
  Serious: Yes (Hospitalization, Other)
  Sender: FDA-Public Use
  Company Number: JP-009507513-1309JPN010149

PATIENT
  Age: 78 Year
  Sex: Female

DRUGS (12)
  1. REFLEX [Suspect]
     Indication: DEPRESSED MOOD
     Dosage: 3.75 MG, DIVIDED DOSE, FREQUENCY: UNKNOWN
     Route: 048
     Dates: start: 201106
  2. REFLEX [Suspect]
     Dosage: 7.5 MG, DIVIDED DOSE, FREQUENCY: UNKNOWN
     Route: 048
     Dates: start: 201205
  3. REFLEX [Suspect]
     Dosage: 15 MG, DIVIDED DOSE, FREQUENCY: UNKNOWN
     Route: 048
     Dates: start: 20120615, end: 20120619
  4. ESCITALOPRAM OXALATE [Suspect]
     Indication: DEPRESSED MOOD
     Dosage: 20 MG, DIVIDED DOSE, FREQUENCY: UNKNOWN
     Route: 048
  5. ESCITALOPRAM OXALATE [Suspect]
     Dosage: 15 MG, DIVIDED DOSE, FREQUENCY: UNKNOWN
     Route: 048
  6. ESCITALOPRAM OXALATE [Suspect]
     Dosage: 10 MG, DIVIDED DOSE, FREQUENCY: UNKNOWN
     Route: 048
  7. DULOXETINE HYDROCHLORIDE [Suspect]
     Indication: DEPRESSED MOOD
     Dosage: 20 MG, DIVIDED DOSE, FREQUENCY: UNKNOWN
     Route: 048
  8. DULOXETINE HYDROCHLORIDE [Suspect]
     Dosage: 40 MG, DIVIDED DOSE, FREQUENCY: UNKNOWN
     Route: 048
  9. ZOLPIDEM TARTRATE [Concomitant]
     Indication: INSOMNIA
     Dosage: DAILY DOSE 10 MG
     Route: 048
     Dates: start: 20120619, end: 20120619
  10. SULPIRIDE [Concomitant]
     Indication: DEPRESSED MOOD
     Dosage: 50 MG, DIVIDED DOSE, FREQUENCY: UNKNOWN
     Route: 048
  11. AMOXAPINE [Concomitant]
     Indication: DEPRESSED MOOD
     Dosage: 10 MG, DIVIDED DOSE, FREQUENCY: UNKNOWN
     Route: 048
  12. BROTIZOLAM [Concomitant]
     Indication: INSOMNIA
     Dosage: DAILY DOSE 0.25 MG
     Route: 048
     Dates: start: 20120620, end: 20120621

REACTIONS (1)
  - Inappropriate antidiuretic hormone secretion [Recovered/Resolved]
